FAERS Safety Report 11488268 (Version 1)
Quarter: 2015Q3

REPORT INFORMATION
  Report Type: Spontaneous
  Country: US (occurrence: US)
  Receive Date: 20150910
  Receipt Date: 20150910
  Transmission Date: 20151125
  Serious: No
  Sender: FDA-Public Use
  Company Number: US-ROCHE-1448811

PATIENT
  Age: 53 Year
  Sex: Female

DRUGS (1)
  1. PEGASYS [Suspect]
     Active Substance: PEGINTERFERON ALFA-2A
     Indication: HEPATITIS C
     Route: 058
     Dates: start: 20140805

REACTIONS (8)
  - Nausea [Unknown]
  - Dyspnoea [Unknown]
  - Decreased appetite [Unknown]
  - Anxiety [Unknown]
  - Skin irritation [Unknown]
  - Rash [Unknown]
  - Pruritus [Unknown]
  - Erythema [Unknown]
